FAERS Safety Report 7418011-0 (Version None)
Quarter: 2011Q2

REPORT INFORMATION
  Report Type: 
  Country: None (occurrence: None)
  Receive Date: 20110415
  Receipt Date: 20110407
  Transmission Date: 20111010
  Serious: Yes (Other)
  Sender: FDA-Public Use
  Company Number: GB-ROCHE-675978

PATIENT
  Sex: Female
  Weight: 56 kg

DRUGS (9)
  1. FOLIC ACID [Concomitant]
     Dates: start: 20090813
  2. TOCILIZUMAB [Suspect]
     Indication: RHEUMATOID ARTHRITIS
     Dosage: FREQUENCY: STAT. FORM : INTRAVENOUS INFUSION
     Route: 042
     Dates: start: 20091208
  3. ARCOXIA [Concomitant]
     Dates: start: 20090101
  4. FOSAMAX [Concomitant]
  5. PRILOSEC [Concomitant]
  6. DOXAZOSIN MESYLATE [Concomitant]
  7. BLINDED METHOTREXATE [Suspect]
     Indication: RHEUMATOID ARTHRITIS
     Dosage: LAST DOSE PRIOR TO SAE: 15 DECEMBER 2009
     Route: 048
     Dates: start: 20091208
  8. TEMAZEPAM [Concomitant]
  9. ASPIRIN [Concomitant]
     Dates: start: 19950101

REACTIONS (1)
  - TENDON RUPTURE [None]
